FAERS Safety Report 25564117 (Version 1)
Quarter: 2025Q3

REPORT INFORMATION
  Report Type: Spontaneous
  Country: US (occurrence: US)
  Receive Date: 20250716
  Receipt Date: 20250716
  Transmission Date: 20251021
  Serious: Yes (Other)
  Sender: NOVO NORDISK
  Company Number: US-NOVOPROD-1359045

PATIENT
  Age: 25 Year
  Sex: Female
  Weight: 127 kg

DRUGS (2)
  1. OZEMPIC [Suspect]
     Active Substance: SEMAGLUTIDE
     Indication: Obesity
  2. OZEMPIC [Suspect]
     Active Substance: SEMAGLUTIDE
     Indication: Type 2 diabetes mellitus
     Dosage: 0.5 MG, QW
     Dates: start: 20180101, end: 20231231

REACTIONS (6)
  - Impaired gastric emptying [Unknown]
  - Loss of personal independence in daily activities [Unknown]
  - Nausea [Unknown]
  - Vomiting [Unknown]
  - Constipation [Unknown]
  - Off label use [Unknown]

NARRATIVE: CASE EVENT DATE: 20180101
